FAERS Safety Report 13927390 (Version 1)
Quarter: 2017Q3

REPORT INFORMATION
  Report Type: Spontaneous
  Country: US (occurrence: US)
  Receive Date: 20170831
  Receipt Date: 20170831
  Transmission Date: 20171127
  Serious: Yes (Death)
  Sender: FDA-Public Use
  Company Number: None

PATIENT
  Age: 26 Year
  Sex: Female
  Weight: 112.5 kg

DRUGS (1)
  1. BOTOX [Suspect]
     Active Substance: ONABOTULINUMTOXINA
     Indication: VOCAL CORD DYSFUNCTION
     Dosage: ?          OTHER FREQUENCY:EVERY 3-4 MONTHS;OTHER ROUTE:INJECTED INTO VOCAL CORD?
     Dates: start: 20150110, end: 20150113

REACTIONS (3)
  - Syncope [None]
  - Off label use [None]
  - Death [None]

NARRATIVE: CASE EVENT DATE: 20150123
